FAERS Safety Report 10639968 (Version 1)
Quarter: 2014Q4

REPORT INFORMATION
  Report Type: Spontaneous
  Country: US (occurrence: None)
  Receive Date: 20141208
  Receipt Date: 20141208
  Transmission Date: 20150529
  Serious: Yes (Death)
  Sender: FDA-Public Use
  Company Number: None

PATIENT
  Age: 79 Year
  Sex: Male
  Weight: 69.4 kg

DRUGS (1)
  1. DEGARELIX [Suspect]
     Active Substance: DEGARELIX
     Dosage: TWO ABDOMINAL INJECTIONS?ONCE?GIVEN INTO/UNDER THE SKIN
     Dates: start: 20141128

REACTIONS (1)
  - Sudden death [None]

NARRATIVE: CASE EVENT DATE: 20141129
